FAERS Safety Report 13940419 (Version 1)
Quarter: 2017Q3

REPORT INFORMATION
  Report Type: Spontaneous
  Country: AR (occurrence: AR)
  Receive Date: 20170906
  Receipt Date: 20170906
  Transmission Date: 20171127
  Serious: Yes (Other)
  Sender: FDA-Public Use
  Company Number: AR-ASTELLAS-2017US035600

PATIENT
  Age: 7 Year
  Sex: Male

DRUGS (8)
  1. PREDNISONE. [Suspect]
     Active Substance: PREDNISONE
     Dosage: 0.05 MG/KG, ONCE DAILY (FOR 6 WEEKS)
     Route: 048
  2. PREDNISONE. [Suspect]
     Active Substance: PREDNISONE
     Indication: INTESTINAL TRANSPLANT
     Dosage: UNK UNK, UNKNOWN FREQ.
     Route: 048
  3. TACROLIMUS. [Suspect]
     Active Substance: TACROLIMUS
     Indication: INTESTINAL TRANSPLANT
     Dosage: (BLOOD LEVELS 14-16 NG/ML)
     Route: 065
  4. MYCOPHENOLATE MOFETIL. [Suspect]
     Active Substance: MYCOPHENOLATE MOFETIL
     Indication: INTESTINAL TRANSPLANT
     Dosage: UNK UNK, UNKNOWN FREQ.
     Route: 065
  5. TACROLIMUS. [Suspect]
     Active Substance: TACROLIMUS
     Dosage: (BLOOD LEVELS 6-8 NG/ML)
     Route: 065
  6. PREDNISONE. [Suspect]
     Active Substance: PREDNISONE
     Dosage: 1 MG/KG, ONCE DAILY (FOR 6 WEEKS)
     Route: 048
  7. TACROLIMUS. [Suspect]
     Active Substance: TACROLIMUS
     Dosage: (BLOOD LEVELS AROUND 6 NG/ML)
     Route: 065
  8. PREDNISONE. [Suspect]
     Active Substance: PREDNISONE
     Dosage: 2 MG, ONCE DAILY (8 MONTHS POST-TRANSPLANT)
     Route: 048

REACTIONS (7)
  - Gastrostomy [Unknown]
  - Diarrhoea [Recovered/Resolved]
  - Off label use [Unknown]
  - Encapsulating peritoneal sclerosis [Recovered/Resolved]
  - Transplant rejection [Recovered/Resolved]
  - Blood immunoglobulin E increased [Not Recovered/Not Resolved]
  - Eosinophilia [Recovered/Resolved]
